FAERS Safety Report 8425488-0 (Version None)
Quarter: 2012Q2

REPORT INFORMATION
  Report Type: 
  Country: None (occurrence: None)
  Receive Date: 20120605
  Receipt Date: 20120605
  Transmission Date: 20120825
  Serious: Yes (Other)
  Sender: FDA-Public Use
  Company Number: None

PATIENT
  Age: 70 Year
  Sex: Male
  Weight: 99.7913 kg

DRUGS (1)
  1. ALLOPURINOL [Suspect]
     Indication: GOUT
     Dosage: 1 TAB - 100 MG
     Dates: start: 20120427, end: 20120502

REACTIONS (8)
  - OROPHARYNGEAL PAIN [None]
  - ASTHENIA [None]
  - DYSPNOEA [None]
  - EYE IRRITATION [None]
  - ARTHRALGIA [None]
  - SWOLLEN TONGUE [None]
  - RASH [None]
  - PYREXIA [None]
